FAERS Safety Report 8495074-5 (Version None)
Quarter: 2012Q3

REPORT INFORMATION
  Report Type: 
  Country: None (occurrence: None)
  Receive Date: 20120709
  Receipt Date: 20120629
  Transmission Date: 20120928
  Serious: Yes (Other)
  Sender: FDA-Public Use
  Company Number: US-JNJFOC-20120701426

PATIENT
  Sex: Female
  Weight: 113.4 kg

DRUGS (12)
  1. LIBRAX [Concomitant]
     Indication: IRRITABLE BOWEL SYNDROME
     Dosage: 4 TIMES A DAY AS NEEDED
     Route: 048
     Dates: start: 20110101
  2. NORVASC [Concomitant]
     Indication: HYPERTENSION
     Route: 048
     Dates: start: 20100101
  3. CLONIDINE [Concomitant]
     Indication: HYPERTENSION
     Route: 048
     Dates: start: 20090101
  4. ATENOLOL [Concomitant]
     Indication: HYPERTENSION
     Route: 048
     Dates: start: 20100101
  5. ELMIRON [Concomitant]
     Indication: CYSTITIS INTERSTITIAL
     Route: 048
     Dates: start: 20120224
  6. ATIVAN [Concomitant]
     Route: 048
     Dates: start: 20120515
  7. LISINOPRIL [Concomitant]
     Indication: HYPERTENSION
     Route: 048
     Dates: start: 20110101
  8. DONNATAL [Concomitant]
     Indication: IMPAIRED GASTRIC EMPTYING
     Dosage: 2 TEASPOONS 4 TIMES A DAY AS NEEDED
     Route: 048
  9. PERCOCET [Concomitant]
     Indication: BREAKTHROUGH PAIN
     Dosage: 1/2 TABLET 10/325 MG EVERY 8 HOURS AS NEEDED
     Route: 048
  10. LANTUS [Concomitant]
     Indication: DIABETES MELLITUS
     Dosage: SLIDING SCLAE/AS NEEDED
     Route: 058
     Dates: start: 20070101
  11. FENTANYL-100 [Suspect]
     Indication: ABDOMINAL PAIN
     Route: 062
     Dates: start: 20120515, end: 20120518
  12. FENTANYL-100 [Suspect]
     Indication: BACK PAIN
     Route: 062
     Dates: start: 20120518

REACTIONS (6)
  - SEDATION [None]
  - FIBROMYALGIA [None]
  - WRONG TECHNIQUE IN DRUG USAGE PROCESS [None]
  - INADEQUATE ANALGESIA [None]
  - PRODUCT QUALITY ISSUE [None]
  - BLOOD PRESSURE INCREASED [None]
